FAERS Safety Report 25976813 (Version 1)
Quarter: 2025Q4

REPORT INFORMATION
  Report Type: Report from Study
  Country: AU (occurrence: AU)
  Receive Date: 20251029
  Receipt Date: 20251029
  Transmission Date: 20260119
  Serious: Yes (Hospitalization)
  Sender: ABBVIE
  Company Number: AU-ABBVIE-6521293

PATIENT
  Age: 62 Year
  Sex: Male

DRUGS (1)
  1. VYALEV [Suspect]
     Active Substance: FOSCARBIDOPA\FOSLEVODOPA
     Indication: Parkinson^s disease
     Route: 058
     Dates: start: 20251020

REACTIONS (3)
  - Dystonia [Unknown]
  - Dyskinesia [Unknown]
  - Device issue [Unknown]

NARRATIVE: CASE EVENT DATE: 20251001
